FAERS Safety Report 8571698-1 (Version None)
Quarter: 2012Q3

REPORT INFORMATION
  Report Type: 
  Country: None (occurrence: None)
  Receive Date: 20120806
  Receipt Date: 20120727
  Transmission Date: 20120928
  Serious: Yes (Hospitalization, Other)
  Sender: FDA-Public Use
  Company Number: JP-JNJFOC-20120703113

PATIENT
  Age: 82 Year
  Sex: Female

DRUGS (5)
  1. REMICADE [Suspect]
     Route: 042
     Dates: start: 20060101
  2. METHOTREXATE [Suspect]
     Indication: RHEUMATOID ARTHRITIS
     Route: 065
     Dates: start: 20091201, end: 20100324
  3. REMICADE [Suspect]
     Indication: RHEUMATOID ARTHRITIS
     Route: 042
     Dates: start: 20100324
  4. REMICADE [Suspect]
     Route: 042
     Dates: start: 20091201
  5. METHOTREXATE [Suspect]
     Route: 065
     Dates: start: 20060101

REACTIONS (3)
  - CRYPTOCOCCOSIS [None]
  - CEREBRAL INFARCTION [None]
  - MENINGITIS CRYPTOCOCCAL [None]
